FAERS Safety Report 14661563 (Version 1)
Quarter: 2018Q1

REPORT INFORMATION
  Report Type: Report from Study
  Country: IN (occurrence: IN)
  Receive Date: 20180320
  Receipt Date: 20180320
  Transmission Date: 20180509
  Serious: Yes (Death)
  Sender: FDA-Public Use
  Company Number: IN-PFIZER INC-2018112467

PATIENT
  Age: 22 Year
  Sex: Male

DRUGS (3)
  1. CEFEPIME HYDROCHLORIDE\TAZOBACTAM SODIUM [Suspect]
     Active Substance: CEFEPIME HYDROCHLORIDE\TAZOBACTAM SODIUM
     Indication: ABDOMINAL SEPSIS
     Dosage: UNK
  2. TIGECYCLINE. [Suspect]
     Active Substance: TIGECYCLINE
     Indication: ABDOMINAL SEPSIS
     Dosage: UNK
  3. COLISTIN [Concomitant]
     Active Substance: COLISTIN
     Indication: KLEBSIELLA INFECTION
     Dosage: UNK

REACTIONS (1)
  - Drug ineffective [Fatal]
